FAERS Safety Report 9607489 (Version 3)
Quarter: 2013Q4

REPORT INFORMATION
  Report Type: Spontaneous
  Country: US (occurrence: US)
  Receive Date: 20131009
  Receipt Date: 20131210
  Transmission Date: 20140711
  Serious: Yes (Disabling)
  Sender: FDA-Public Use
  Company Number: US-SA-2013SA097167

PATIENT
  Age: 66 Year
  Sex: Female
  Weight: 81.19 kg

DRUGS (10)
  1. LANTUS SOLOSTAR [Suspect]
     Indication: TYPE 2 DIABETES MELLITUS
     Dosage: 22-25 UNITS. DOSE:22 UNIT(S)
     Route: 051
     Dates: start: 20120612
  2. LANTUS SOLOSTAR [Suspect]
     Indication: TYPE 2 DIABETES MELLITUS
     Dosage: 22-25 UNITS. DOSE:22 UNIT(S)
     Route: 051
     Dates: start: 20120612
  3. LANTUS SOLOSTAR [Suspect]
     Indication: TYPE 2 DIABETES MELLITUS
     Dosage: 22-25 UNITS. DOSE:22 UNIT(S)
     Route: 051
     Dates: start: 20120612
  4. LANTUS SOLOSTAR [Suspect]
     Indication: TYPE 2 DIABETES MELLITUS
     Dosage: 22-25 UNITS. DOSE:22 UNIT(S)
     Route: 051
     Dates: start: 20120612
  5. SOLOSTAR [Concomitant]
  6. DILTIAZEM [Concomitant]
     Indication: BLOOD PRESSURE
     Route: 048
     Dates: start: 2001
  7. GLIPIZIDE [Concomitant]
     Indication: DIABETES MELLITUS
     Route: 065
  8. TRILIPIX [Concomitant]
     Indication: BLOOD CHOLESTEROL
     Route: 065
  9. PLAVIX [Concomitant]
     Indication: THROMBOSIS PROPHYLAXIS
     Route: 065
     Dates: start: 2001
  10. CARBAMAZEPINE [Concomitant]
     Indication: CONVULSION
     Route: 065

REACTIONS (4)
  - Disability [Unknown]
  - Glycosylated haemoglobin increased [Unknown]
  - Incorrect product storage [Unknown]
  - Injury associated with device [Unknown]
